FAERS Safety Report 22869038 (Version 3)
Quarter: 2023Q4

REPORT INFORMATION
  Report Type: Report from Study
  Country: TW (occurrence: TW)
  Receive Date: 20230825
  Receipt Date: 20231017
  Transmission Date: 20240110
  Serious: Yes (Other)
  Sender: FDA-Public Use
  Company Number: TW-PFIZER INC-PV202300142223

PATIENT
  Age: 65 Year
  Sex: Female
  Weight: 55.4 kg

DRUGS (9)
  1. ENCORAFENIB [Suspect]
     Active Substance: ENCORAFENIB
     Indication: Neoplasm malignant
     Dosage: 300 MG, 1X/DAY
     Route: 048
     Dates: start: 20230627
  2. OXALIPLATIN [Suspect]
     Active Substance: OXALIPLATIN
     Indication: Neoplasm malignant
     Dosage: 132 MG, EVERY 2 WEEKS (Q2W)
     Route: 042
     Dates: start: 20230627
  3. ERBITUX [Suspect]
     Active Substance: CETUXIMAB
     Indication: Neoplasm malignant
     Dosage: 775 MG, EVERY 2 WEEKS (Q2W)
     Route: 042
     Dates: start: 20230627
  4. LEUCOVORIN [Suspect]
     Active Substance: LEUCOVORIN\LEUCOVORIN CALCIUM
     Indication: Neoplasm malignant
     Dosage: 620 MG, Q2Q
     Route: 042
     Dates: start: 20230627
  5. FLUOROURACIL [Suspect]
     Active Substance: FLUOROURACIL
     Indication: Neoplasm malignant
     Dosage: 620 MG, EVERY 2 WEEKS (Q2W)
     Route: 042
     Dates: start: 20230627
  6. FLUOROURACIL [Suspect]
     Active Substance: FLUOROURACIL
     Dosage: 3720 MG, EVERY 2 WEEKS (Q2W)
     Route: 042
     Dates: start: 20230627
  7. NINCORT [Concomitant]
     Indication: Mucosal inflammation
     Dosage: UNK
     Route: 061
     Dates: start: 20230725
  8. BROTIZOLAM [Concomitant]
     Active Substance: BROTIZOLAM
     Indication: Insomnia
     Dosage: 0.25 MG, 1X/DAY
     Route: 048
     Dates: start: 20230725
  9. DOMPERIDONE [Concomitant]
     Active Substance: DOMPERIDONE
     Indication: Prophylaxis
     Dosage: 10 MG, UNK
     Route: 048
     Dates: start: 20230725

REACTIONS (2)
  - Second primary malignancy [Recovered/Resolved]
  - Malignant melanoma in situ [Recovered/Resolved]

NARRATIVE: CASE EVENT DATE: 20230808
